FAERS Safety Report 24275516 (Version 1)
Quarter: 2024Q3

REPORT INFORMATION
  Report Type: Spontaneous
  Country: JP (occurrence: JP)
  Receive Date: 20240903
  Receipt Date: 20240903
  Transmission Date: 20241016
  Serious: Yes (Death, Hospitalization)
  Sender: JOHNSON AND JOHNSON
  Company Number: JP-JNJFOC-20240880375

PATIENT
  Sex: Male

DRUGS (2)
  1. OPSUMIT [Suspect]
     Active Substance: MACITENTAN
     Indication: Pulmonary arterial hypertension
     Route: 048
  2. UPTRAVI [Concomitant]
     Active Substance: SELEXIPAG
     Dosage: DOSE UNKNOWN
     Route: 048

REACTIONS (3)
  - Choking [Fatal]
  - Pulmonary arterial hypertension [Recovering/Resolving]
  - Respiratory failure [Recovering/Resolving]
